FAERS Safety Report 11553197 (Version 1)
Quarter: 2015Q3

REPORT INFORMATION
  Report Type: Spontaneous
  Country: US (occurrence: None)
  Receive Date: 20150924
  Receipt Date: 20150924
  Transmission Date: 20151125
  Serious: Yes (Other)
  Sender: FDA-Public Use
  Company Number: None

PATIENT
  Sex: Female

DRUGS (1)
  1. IBRANCE [Suspect]
     Active Substance: PALBOCICLIB
     Indication: BREAST CANCER
     Dosage: 21 DAYS ON, 7D OFF
     Route: 048
     Dates: start: 20150902, end: 20150915

REACTIONS (2)
  - Diarrhoea [None]
  - Abdominal pain [None]
